FAERS Safety Report 6335529-2 (Version None)
Quarter: 2009Q3

REPORT INFORMATION
  Report Type: 
  Country: None (occurrence: None)
  Receive Date: 20090831
  Receipt Date: 20090818
  Transmission Date: 20100115
  Serious: Yes (Hospitalization)
  Sender: FDA-Public Use
  Company Number: BE-MYLANLABS-2009S1014690

PATIENT
  Age: 68 Year
  Sex: Male

DRUGS (8)
  1. DICLOFENAC [Suspect]
  2. DIAZEPAM [Concomitant]
  3. AMITRIPTYLINE [Concomitant]
  4. VENLAFAXINE HYDROCHLORIDE [Concomitant]
  5. PANTOPRAZOLE SODIUM [Concomitant]
  6. FUROSEMIDE [Concomitant]
  7. LORAZEPAM [Concomitant]
  8. ATENOLOL [Concomitant]

REACTIONS (3)
  - DRUG TOXICITY [None]
  - LINEAR IGA DISEASE [None]
  - VASCULITIS [None]
